FAERS Safety Report 5506434-6 (Version None)
Quarter: 2007Q4

REPORT INFORMATION
  Report Type: 
  Country: None (occurrence: None)
  Receive Date: 20071101
  Receipt Date: 20071101
  Transmission Date: 20080405
  Serious: Yes (Other)
  Sender: FDA-Public Use
  Company Number: None

PATIENT
  Age: 72 Year
  Sex: Female
  Weight: 44.9061 kg

DRUGS (2)
  1. OCTAGAM [Suspect]
     Indication: NERVOUS SYSTEM DISORDER
     Dosage: 20 GM  DAILY  IV DRIP
     Route: 041
  2. OCTAGAM [Suspect]

REACTIONS (6)
  - CHILLS [None]
  - DYSPNOEA [None]
  - INFUSION RELATED REACTION [None]
  - LIVEDO RETICULARIS [None]
  - SKIN DISCOLOURATION [None]
  - TREMOR [None]
